FAERS Safety Report 15464752 (Version 4)
Quarter: 2022Q3

REPORT INFORMATION
  Report Type: Spontaneous
  Country: US (occurrence: None)
  Receive Date: 20181004
  Receipt Date: 20220913
  Transmission Date: 20221027
  Serious: Yes (Other)
  Sender: FDA-Public Use
  Company Number: 2018SF24810

PATIENT
  Age: 27570 Day
  Sex: Male
  Weight: 65.8 kg

DRUGS (50)
  1. NEXIUM [Suspect]
     Active Substance: ESOMEPRAZOLE MAGNESIUM
     Indication: Gastrooesophageal reflux disease
     Route: 048
     Dates: start: 2011
  2. NEXIUM [Suspect]
     Active Substance: ESOMEPRAZOLE MAGNESIUM
     Indication: Back pain
     Route: 048
     Dates: start: 2011
  3. PROTONIX [Suspect]
     Active Substance: PANTOPRAZOLE SODIUM
     Indication: Back pain
     Route: 065
     Dates: start: 2014, end: 2016
  4. PROTONIX [Suspect]
     Active Substance: PANTOPRAZOLE SODIUM
     Indication: Gastrooesophageal reflux disease
     Route: 065
     Dates: start: 2014, end: 2016
  5. PROTONIX [Suspect]
     Active Substance: PANTOPRAZOLE SODIUM
     Indication: Back pain
     Dosage: 40.0MG UNKNOWN
     Route: 065
     Dates: start: 20141201
  6. PROTONIX [Suspect]
     Active Substance: PANTOPRAZOLE SODIUM
     Indication: Gastrooesophageal reflux disease
     Dosage: 40.0MG UNKNOWN
     Route: 065
     Dates: start: 20141201
  7. PROTONIX [Suspect]
     Active Substance: PANTOPRAZOLE SODIUM
     Indication: Back pain
     Dosage: 40.0MG UNKNOWN
     Route: 065
     Dates: start: 2015, end: 2016
  8. PROTONIX [Suspect]
     Active Substance: PANTOPRAZOLE SODIUM
     Indication: Gastrooesophageal reflux disease
     Dosage: 40.0MG UNKNOWN
     Route: 065
     Dates: start: 2015, end: 2016
  9. PROTONIX [Suspect]
     Active Substance: PANTOPRAZOLE SODIUM
     Indication: Back pain
     Dosage: GENERIC40.0MG UNKNOWN
     Route: 065
     Dates: start: 2014, end: 2015
  10. PROTONIX [Suspect]
     Active Substance: PANTOPRAZOLE SODIUM
     Indication: Gastrooesophageal reflux disease
     Dosage: GENERIC40.0MG UNKNOWN
     Route: 065
     Dates: start: 2014, end: 2015
  11. VITAMINS [Concomitant]
     Active Substance: VITAMINS
  12. CALCIUM [Concomitant]
     Active Substance: CALCIUM
  13. EYE VIT [Concomitant]
  14. VITAMIN D3 [Concomitant]
     Active Substance: CHOLECALCIFEROL
  15. VITAMIN E [Concomitant]
     Active Substance: .ALPHA.-TOCOPHEROL
  16. MAGNESIUM [Concomitant]
     Active Substance: MAGNESIUM
  17. ZANTAC 300/ RANITIDINE [Concomitant]
  18. ASPIRIN [Concomitant]
     Active Substance: ASPIRIN
     Dosage: 81 MG ORAL TABLET
  19. FLONASE [Concomitant]
     Active Substance: FLUTICASONE PROPIONATE
     Dosage: 50 MCG/ACTUATION NASAL SPRAY
  20. SUPERDOPHILUS [Concomitant]
     Dosage: 1 CAPSULE BY MOUTH DAILY
  21. URO-MAG [Concomitant]
     Dosage: 84.5 MG (140 MG) ORAL CAPSULE
  22. TOPROL XL [Concomitant]
     Active Substance: METOPROLOL SUCCINATE
     Dosage: 25 MG ORAL EXTENDED-RELEASE TABLET
  23. GUAIFENESIN AC [Concomitant]
     Active Substance: CODEINE PHOSPHATE\GUAIFENESIN
     Dosage: 10-100 MG/5 ML ORAL LIQUID
  24. MEDROL [Concomitant]
     Active Substance: METHYLPREDNISOLONE
     Dosage: 4 MG ORAL TABLET
  25. CEFTIN [Concomitant]
     Active Substance: CEFUROXIME AXETIL
     Dosage: 250 MG ORAL TABLET
  26. PENNSAID [Concomitant]
     Active Substance: DICLOFENAC SODIUM
     Dosage: 20 MG/GRAM /ACTUATION
  27. NAPROXEN [Concomitant]
     Active Substance: NAPROXEN
     Dosage: 500 MG ORAL TABLET
  28. ZETIA [Concomitant]
     Active Substance: EZETIMIBE
     Dosage: 10 MG DAILY
  29. OMEGA [Concomitant]
     Dosage: 140 MG B.I.D.
  30. ACETAMINOPHEN\HYDROCODONE BITARTRATE [Concomitant]
     Active Substance: ACETAMINOPHEN\HYDROCODONE BITARTRATE
     Dosage: 5-500 MG
  31. CYCLOBENZAPRINE HYDROCHLORIDE [Concomitant]
     Active Substance: CYCLOBENZAPRINE HYDROCHLORIDE
     Dosage: 10 MG
  32. CODEINE\PROMETHAZINE [Concomitant]
     Active Substance: CODEINE\PROMETHAZINE
     Dosage: 6.25-10 MG/5ML
  33. PIROXICAM [Concomitant]
     Active Substance: PIROXICAM
     Dosage: 20 MG CAPSULE
  34. ONDANSETRON [Concomitant]
     Active Substance: ONDANSETRON
  35. PRAVASTATIN/ PRAVACHOL [Concomitant]
  36. AMOXICILLIN [Concomitant]
     Active Substance: AMOXICILLIN
     Route: 065
  37. QUESTRAN [Concomitant]
     Active Substance: CHOLESTYRAMINE
     Route: 065
  38. VIOXX [Concomitant]
     Active Substance: ROFECOXIB
     Route: 065
  39. NORVASC [Concomitant]
     Active Substance: AMLODIPINE BESYLATE
     Route: 065
  40. COENZYME Q10 [Concomitant]
     Active Substance: DIETARY SUPPLEMENT\UBIDECARENONE
  41. MUCINEX [Concomitant]
     Active Substance: GUAIFENESIN
  42. PHENERGAN [Concomitant]
     Active Substance: PROMETHAZINE HYDROCHLORIDE
  43. LUTEIN [Concomitant]
     Active Substance: LUTEIN
  44. PRAVACHOL [Concomitant]
     Active Substance: PRAVASTATIN SODIUM
  45. ENTEX T [Concomitant]
     Active Substance: GUAIFENESIN\PSEUDOEPHEDRINE HYDROCHLORIDE
  46. ALEVE [Concomitant]
     Active Substance: NAPROXEN SODIUM
  47. VITAMIN D3 [Concomitant]
     Active Substance: CHOLECALCIFEROL
     Indication: Vitamin D
     Dates: start: 2006
  48. FAMOTIDINE [Concomitant]
     Active Substance: FAMOTIDINE
     Dates: start: 2014, end: 2014
  49. ZANTAC [Concomitant]
     Active Substance: RANITIDINE HYDROCHLORIDE
     Dates: start: 2014, end: 2014
  50. ZOFRAN [Concomitant]
     Active Substance: ONDANSETRON HYDROCHLORIDE
     Dates: start: 2014, end: 2014

REACTIONS (6)
  - Renal failure [Not Recovered/Not Resolved]
  - Renal impairment [Not Recovered/Not Resolved]
  - Renal artery stenosis [Not Recovered/Not Resolved]
  - Chronic kidney disease [Not Recovered/Not Resolved]
  - Renal artery arteriosclerosis [Unknown]
  - Hyperparathyroidism secondary [Unknown]

NARRATIVE: CASE EVENT DATE: 20110325
